FAERS Safety Report 4875782-5 (Version None)
Quarter: 2006Q1

REPORT INFORMATION
  Report Type: 
  Country: None (occurrence: None)
  Receive Date: 20060104
  Receipt Date: 20051227
  Transmission Date: 20060701
  Serious: Yes (Hospitalization)
  Sender: FDA-Public Use
  Company Number: RENA-11643

PATIENT
  Age: 48 Year
  Sex: Female

DRUGS (8)
  1. RENAGEL [Suspect]
     Indication: HYPERPHOSPHATAEMIA
     Dosage: 2 G TID PO
     Route: 048
     Dates: start: 20040802
  2. LOXONIN [Concomitant]
  3. DEPAS [Concomitant]
  4. ALLOPURINOL [Concomitant]
  5. ASPIRIN [Concomitant]
  6. LASIX [Concomitant]
  7. CALTAN (CALCIUM CARBONATE) [Concomitant]
  8. PURSENNID [Concomitant]

REACTIONS (1)
  - GASTRIC ULCER HAEMORRHAGE [None]
